FAERS Safety Report 13356491 (Version 15)
Quarter: 2019Q3

REPORT INFORMATION
  Report Type: Report from Study
  Country: DK (occurrence: DK)
  Receive Date: 20170321
  Receipt Date: 20190828
  Transmission Date: 20191004
  Serious: Yes (Hospitalization, Disabling, Other)
  Sender: FDA-Public Use
  Company Number: DK-SA-2016SA220324

PATIENT
  Age: 41 Year
  Sex: Female
  Weight: 73 kg

DRUGS (4)
  1. ACETYLSALICYLIC ACID [Concomitant]
     Active Substance: ASPIRIN
     Indication: PREMEDICATION
     Route: 065
  2. HEPARIN [Concomitant]
     Active Substance: HEPARIN SODIUM
     Indication: PREMEDICATION
     Route: 065
  3. ALEMTUZUMAB [Suspect]
     Active Substance: ALEMTUZUMAB
     Indication: MULTIPLE SCLEROSIS RELAPSE
     Dosage: 12 MG,QD
     Route: 041
     Dates: start: 20161121, end: 20161125
  4. TICAGRELOR. [Concomitant]
     Active Substance: TICAGRELOR
     Indication: PREMEDICATION
     Route: 065

REACTIONS (8)
  - Myocardial infarction [Recovered/Resolved]
  - Lymphopenia [Not Recovered/Not Resolved]
  - Urinary tract infection [Recovered/Resolved]
  - Multiple sclerosis relapse [Recovered/Resolved with Sequelae]
  - Genital infection [Not Recovered/Not Resolved]
  - Angina pectoris [Recovered/Resolved]
  - Fatigue [Recovered/Resolved]
  - Hot flush [Not Recovered/Not Resolved]

NARRATIVE: CASE EVENT DATE: 20161121
